FAERS Safety Report 25428665 (Version 1)
Quarter: 2025Q2

REPORT INFORMATION
  Report Type: Spontaneous
  Country: US (occurrence: None)
  Receive Date: 20250611
  Receipt Date: 20250611
  Transmission Date: 20250717
  Serious: Yes (Hospitalization)
  Sender: FDA-CTU
  Company Number: None

PATIENT
  Sex: Female

DRUGS (1)
  1. OJJAARA [Suspect]
     Active Substance: MOMELOTINIB DIHYDROCHLORIDE MONOHYDRATE
     Indication: Myelofibrosis
     Dosage: FREQUENCY : DAILY;?
     Route: 048
     Dates: start: 20231118

REACTIONS (7)
  - Rectal haemorrhage [None]
  - Haemoglobin decreased [None]
  - Grief reaction [None]
  - Pain [None]
  - Depressed mood [None]
  - Quality of life decreased [None]
  - Asthenia [None]
